FAERS Safety Report 8062332-8 (Version None)
Quarter: 2011Q4

REPORT INFORMATION
  Report Type: 
  Country: None (occurrence: None)
  Receive Date: 20111220
  Receipt Date: 20110307
  Transmission Date: 20120403
  Serious: Yes (Other)
  Sender: FDA-Public Use
  Company Number: 2011001100

PATIENT
  Age: 33 Year
  Sex: Male
  Weight: 86.1834 kg

DRUGS (10)
  1. DEPO-TESTOSTERONE [Concomitant]
  2. AMBIEN CR [Concomitant]
  3. ONDANSETRON HCL [Concomitant]
  4. OPANA [Concomitant]
  5. PROVIGIL [Concomitant]
  6. LOPRESSOR [Concomitant]
  7. ACTIQ [Suspect]
     Indication: BACK PAIN
     Dosage: (1600 MCG), BU
     Route: 002
     Dates: start: 20070101
  8. ACTIQ [Suspect]
     Indication: BACK PAIN
     Dosage: (1600 MCG), BU
     Route: 002
     Dates: start: 20030301, end: 20070101
  9. CYMBALTA [Concomitant]
  10. PROTONICS [Concomitant]

REACTIONS (5)
  - FATIGUE [None]
  - DRUG INEFFECTIVE [None]
  - BLOOD TESTOSTERONE DECREASED [None]
  - DRUG PRESCRIBING ERROR [None]
  - NAUSEA [None]
